FAERS Safety Report 9467258 (Version 2)
Quarter: 2013Q3

REPORT INFORMATION
  Report Type: Spontaneous
  Country: US (occurrence: US)
  Receive Date: 20130821
  Receipt Date: 20130919
  Transmission Date: 20140515
  Serious: Yes (Hospitalization)
  Sender: FDA-Public Use
  Company Number: US-BIOGENIDEC-2013BI075574

PATIENT
  Age: 42 Year
  Sex: Male

DRUGS (1)
  1. TYSABRI [Suspect]
     Indication: MULTIPLE SCLEROSIS
     Route: 042
     Dates: start: 20120910, end: 20130715

REACTIONS (3)
  - Secondary progressive multiple sclerosis [Unknown]
  - Multiple sclerosis relapse [Recovered/Resolved]
  - Back pain [Not Recovered/Not Resolved]
